FAERS Safety Report 4929182-X (Version None)
Quarter: 2006Q1

REPORT INFORMATION
  Report Type: 
  Country: None (occurrence: None)
  Receive Date: 20060301
  Receipt Date: 20050929
  Transmission Date: 20060701
  Serious: Yes (Hospitalization)
  Sender: FDA-Public Use
  Company Number: US-MERCK-0510USA00645

PATIENT
  Age: 55 Year
  Sex: Male

DRUGS (1)
  1. VIOXX [Suspect]
     Indication: ARTHRITIS
     Route: 048
     Dates: start: 20020101, end: 20040901

REACTIONS (7)
  - ATRIAL FIBRILLATION [None]
  - CAROTID ARTERY DISEASE [None]
  - CORONARY ARTERY DISEASE [None]
  - HEART RATE INCREASED [None]
  - MYOCARDIAL INFARCTION [None]
  - SICK SINUS SYNDROME [None]
  - UMBILICAL HERNIA [None]
